FAERS Safety Report 5659656-8 (Version None)
Quarter: 2008Q1

REPORT INFORMATION
  Report Type: 
  Country: None (occurrence: None)
  Receive Date: 20080311
  Receipt Date: 20080229
  Transmission Date: 20080703
  Serious: Yes (Death)
  Sender: FDA-Public Use
  Company Number: US-ROCHE-549797

PATIENT
  Age: 54 Year
  Sex: Male
  Weight: 80.7 kg

DRUGS (1)
  1. GRANISETRON HYDROCHLORIDE [Suspect]
     Indication: NAUSEA
     Dosage: DOSING: 1 MG EVERY 1-2 WEEKS
     Route: 042
     Dates: start: 20061215, end: 20080115

REACTIONS (1)
  - LUNG NEOPLASM MALIGNANT [None]
